FAERS Safety Report 4642239-6 (Version None)
Quarter: 2005Q2

REPORT INFORMATION
  Report Type: 
  Country: None (occurrence: None)
  Receive Date: 20050420
  Receipt Date: 20050401
  Transmission Date: 20051028
  Serious: Yes (Other)
  Sender: FDA-Public Use
  Company Number: USA050392231

PATIENT
  Sex: Female

DRUGS (1)
  1. HUMULIN N [Suspect]
     Indication: DIABETES MELLITUS

REACTIONS (4)
  - BLINDNESS UNILATERAL [None]
  - OVARIAN CANCER [None]
  - PARATHYROID TUMOUR MALIGNANT [None]
  - TRIPLE VESSEL BYPASS GRAFT [None]
